FAERS Safety Report 7260977-6 (Version None)
Quarter: 2011Q1

REPORT INFORMATION
  Report Type: 
  Country: None (occurrence: None)
  Receive Date: 20110130
  Receipt Date: 20101123
  Transmission Date: 20110831
  Serious: No
  Sender: FDA-Public Use
  Company Number: US-ABBOTT-10P-163-0687395-00

PATIENT
  Age: 41 Year
  Sex: Female

DRUGS (5)
  1. OMEPRAZOLE [Concomitant]
     Indication: ANTACID THERAPY
     Dosage: DAILY
  2. HUMIRA [Suspect]
     Indication: PSORIATIC ARTHROPATHY
     Dosage: 80MG LOADING DOSE
     Dates: start: 20101123, end: 20101123
  3. HUMIRA [Suspect]
  4. HALDOL [Concomitant]
     Indication: BIPOLAR DISORDER
     Dosage: MONTHLY
     Route: 050
  5. PENICILLIN [Concomitant]
     Indication: TOOTH EXTRACTION
     Dates: start: 20101123

REACTIONS (2)
  - DEVICE MALFUNCTION [None]
  - INJECTION SITE HAEMORRHAGE [None]
